FAERS Safety Report 20156317 (Version 3)
Quarter: 2023Q1

REPORT INFORMATION
  Report Type: Report from Study
  Country: CA (occurrence: CA)
  Receive Date: 20211207
  Receipt Date: 20230127
  Transmission Date: 20230418
  Serious: Yes (Other)
  Sender: FDA-Public Use
  Company Number: CA-NOVARTISPH-NVSC2021CA274214

PATIENT
  Age: 42 Year
  Sex: Male
  Weight: 79.5 kg

DRUGS (3)
  1. HYRIMOZ [Suspect]
     Active Substance: ADALIMUMAB-ADAZ
     Indication: Crohn^s disease
     Dosage: 40 MG
     Route: 058
     Dates: start: 20210528, end: 20211112
  2. HYRIMOZ [Suspect]
     Active Substance: ADALIMUMAB-ADAZ
     Dosage: 40 MG, Q2W (14 DAYS)
     Route: 058
     Dates: start: 20221111
  3. ESCITALOPRAM [Concomitant]
     Active Substance: ESCITALOPRAM OXALATE
     Indication: Product used for unknown indication
     Dosage: 10 MG, QD
     Route: 065

REACTIONS (11)
  - Syncope [Unknown]
  - Anal fissure [Unknown]
  - Anorectal disorder [Unknown]
  - Proctalgia [Unknown]
  - Decreased appetite [Unknown]
  - Constipation [Unknown]
  - Contusion [Unknown]
  - Abdominal distension [Unknown]
  - Haemorrhoids [Unknown]
  - Device malfunction [Unknown]
  - Accidental exposure to product [Unknown]

NARRATIVE: CASE EVENT DATE: 20221101
